FAERS Safety Report 14297836 (Version 2)
Quarter: 2017Q4

REPORT INFORMATION
  Report Type: Spontaneous
  Country: IN (occurrence: IN)
  Receive Date: 20171218
  Receipt Date: 20171227
  Transmission Date: 20180321
  Serious: Yes (Other)
  Sender: FDA-Public Use
  Company Number: IN-PFIZER INC-2017533368

PATIENT
  Age: 66 Year
  Sex: Female

DRUGS (11)
  1. AROMASIN [Suspect]
     Active Substance: EXEMESTANE
     Indication: BREAST CANCER
     Dosage: 25 MG, 1X/DAY
     Route: 048
     Dates: start: 201706
  2. EVEROLIMUS. [Suspect]
     Active Substance: EVEROLIMUS
     Dosage: 5 MG, 2X/DAY
  3. EVEROLIMUS. [Suspect]
     Active Substance: EVEROLIMUS
     Dosage: 10 MG, 1X/DAY
  4. BETONIN [Concomitant]
     Dosage: 10 ML, UNK
  5. LIVOGEN [Concomitant]
     Dosage: UNK UNK, 1X/DAY
  6. SUPRADYN [Concomitant]
     Active Substance: ASCORBIC ACID\MINERALS\VITAMINS
     Dosage: UNK UNK, 1X/DAY
  7. AROMASIN [Suspect]
     Active Substance: EXEMESTANE
     Dosage: UNK
     Dates: start: 201712
  8. ZOLFRESH [Concomitant]
     Active Substance: ZOLPIDEM TARTRATE
     Dosage: 10 MG, 1X/DAY
  9. SHELCAL [Concomitant]
     Dosage: 500 MG, 1X/DAY
  10. FOLVITE [Concomitant]
     Active Substance: FOLIC ACID
     Dosage: 5 MG, 1X/DAY
  11. SHELCAL [Concomitant]
     Dosage: 10 ML, UNK

REACTIONS (2)
  - Decreased appetite [Unknown]
  - Intestinal obstruction [Unknown]
